FAERS Safety Report 10472067 (Version 1)
Quarter: 2014Q3

REPORT INFORMATION
  Report Type: Spontaneous
  Country: GB (occurrence: GB)
  Receive Date: 20140924
  Receipt Date: 20140924
  Transmission Date: 20150326
  Serious: Yes (Other)
  Sender: FDA-Public Use
  Company Number: GB-ACCORD-026053

PATIENT
  Age: 34 Year
  Sex: Male
  Weight: 80 kg

DRUGS (4)
  1. AMITRIPTYLINE [Suspect]
     Active Substance: AMITRIPTYLINE
     Indication: PRODUCT USED FOR UNKNOWN INDICATION
     Dates: start: 20140910
  2. PARACETAMOL [Concomitant]
     Active Substance: ACETAMINOPHEN
     Dates: start: 20140806, end: 20140812
  3. BENZYDAMINE [Concomitant]
     Active Substance: BENZYDAMINE
     Dates: start: 20140806, end: 20140811
  4. PIROXICAM. [Concomitant]
     Active Substance: PIROXICAM
     Dates: start: 20140806, end: 20140811

REACTIONS (1)
  - Abnormal sleep-related event [Unknown]

NARRATIVE: CASE EVENT DATE: 20140910
